FAERS Safety Report 10213954 (Version 1)
Quarter: 2014Q2

REPORT INFORMATION
  Report Type: Spontaneous
  Country: US (occurrence: US)
  Receive Date: 20140603
  Receipt Date: 20140603
  Transmission Date: 20141212
  Serious: No
  Sender: FDA-Public Use
  Company Number: US-009507513-1405USA014712

PATIENT
  Sex: Male

DRUGS (1)
  1. LOTRIMIN AF SPRAY POWDER [Suspect]
     Indication: RASH
     Dosage: UNK, BID
     Route: 061
     Dates: start: 20140417

REACTIONS (1)
  - Drug effect decreased [Not Recovered/Not Resolved]
